FAERS Safety Report 15747764 (Version 1)
Quarter: 2018Q4

REPORT INFORMATION
  Report Type: Spontaneous
  Country: US (occurrence: US)
  Receive Date: 20181221
  Receipt Date: 20181221
  Transmission Date: 20190205
  Serious: Yes (Other)
  Sender: FDA-Public Use
  Company Number: US-JNJFOC-20181140986

PATIENT
  Age: 75 Year
  Sex: Female

DRUGS (17)
  1. ZOFRAN [Concomitant]
     Active Substance: ONDANSETRON HYDROCHLORIDE
     Route: 048
  2. ZYLOPRIM [Concomitant]
     Active Substance: ALLOPURINOL
     Route: 048
  3. PLAVIX [Concomitant]
     Active Substance: CLOPIDOGREL BISULFATE
     Route: 048
  4. CALAN [Concomitant]
     Active Substance: VERAPAMIL HYDROCHLORIDE
     Dosage: TAKE 240 MG AT BEDTIME
     Route: 048
  5. CELEXA [Concomitant]
     Active Substance: CITALOPRAM HYDROBROMIDE
     Route: 048
     Dates: start: 20170201
  6. CARDURA [Concomitant]
     Active Substance: DOXAZOSIN MESYLATE
     Route: 048
  7. DITROPAN [Concomitant]
     Active Substance: OXYBUTYNIN CHLORIDE
     Route: 048
  8. POTASSIUM CHLORIDE. [Concomitant]
     Active Substance: POTASSIUM CHLORIDE
     Route: 048
  9. DYAZIDE [Concomitant]
     Active Substance: HYDROCHLOROTHIAZIDE\TRIAMTERENE
     Dosage: 37.5-25 MG, TAKE 1 CAPSULE DAILY
  10. IMBRUVICA [Suspect]
     Active Substance: IBRUTINIB
     Indication: CHRONIC LYMPHOCYTIC LEUKAEMIA
     Route: 048
     Dates: start: 2018
  11. ASPIRIN 81 [Concomitant]
     Active Substance: ASPIRIN
     Route: 048
  12. COMPAZINE [Concomitant]
     Active Substance: PROCHLORPERAZINE MALEATE
     Dosage: 10 MCG, EVERY SIX HOURS
     Route: 048
  13. CRESTOR [Concomitant]
     Active Substance: ROSUVASTATIN CALCIUM
     Route: 048
  14. CYMBALTA [Concomitant]
     Active Substance: DULOXETINE HYDROCHLORIDE
     Route: 048
  15. NORCO [Concomitant]
     Active Substance: ACETAMINOPHEN\HYDROCODONE BITARTRATE
     Indication: PAIN
     Dosage: 7.5-3.25 MG, 1 TABLET EVERY 6 HOURS AS NEEDED
     Route: 048
  16. SYNTHROID [Concomitant]
     Active Substance: LEVOTHYROXINE SODIUM
     Dosage: 125 MCG, EVERY MORNING BEFORE BREAKFAST
     Route: 048
  17. DITROPAN [Concomitant]
     Active Substance: OXYBUTYNIN CHLORIDE
     Dosage: 10 MG, 24 HOUR TABLET
     Route: 048

REACTIONS (25)
  - Nausea [Unknown]
  - Vomiting [Unknown]
  - Hypothyroidism [Unknown]
  - Muscle spasms [Unknown]
  - Lumbar spinal stenosis [Unknown]
  - Vertigo [Unknown]
  - Anaemia [Unknown]
  - Parkinson^s disease [Unknown]
  - Thrombocytopenia [Unknown]
  - Night sweats [Not Recovered/Not Resolved]
  - Urinary tract infection [Recovered/Resolved]
  - Cervical cord compression [Unknown]
  - Hyperuricaemia [Unknown]
  - Headache [Unknown]
  - Embolism venous [Unknown]
  - Intervertebral disc degeneration [Unknown]
  - Back pain [Not Recovered/Not Resolved]
  - Cerebrovascular accident [Unknown]
  - Syncope [Unknown]
  - Venous thrombosis limb [Unknown]
  - Hypertension [Unknown]
  - Transient ischaemic attack [Unknown]
  - Carotid artery disease [Unknown]
  - Post laminectomy syndrome [Unknown]
  - Dyslipidaemia [Unknown]

NARRATIVE: CASE EVENT DATE: 20180221
